FAERS Safety Report 9732854 (Version 1)
Quarter: 2013Q4

REPORT INFORMATION
  Report Type: Spontaneous
  Country: US (occurrence: US)
  Receive Date: 20131204
  Receipt Date: 20131204
  Transmission Date: 20140711
  Serious: No
  Sender: FDA-Public Use
  Company Number: US-GILEAD-2009-0021411

PATIENT
  Sex: Female
  Weight: 67.13 kg

DRUGS (10)
  1. LETAIRIS [Suspect]
     Indication: PULMONARY ARTERIAL HYPERTENSION
     Route: 048
     Dates: start: 20081007
  2. REVATIO [Concomitant]
  3. FUROSEMIDE [Concomitant]
  4. SPIRINOLACTONE [Concomitant]
  5. ZIAC [Concomitant]
  6. SYNTHROID [Concomitant]
  7. A-Z MULTIVITAMIN [Concomitant]
  8. OYSTER SEHILL CALIUM + D [Concomitant]
  9. GLUCOSAMINE [Concomitant]
  10. ADULT LOW DOSE ASPIRIN [Concomitant]

REACTIONS (1)
  - Rash [Unknown]
